FAERS Safety Report 6632632-4 (Version None)
Quarter: 2010Q1

REPORT INFORMATION
  Report Type: 
  Country: None (occurrence: None)
  Receive Date: 20100312
  Receipt Date: 20100304
  Transmission Date: 20100710
  Serious: Yes (Other)
  Sender: FDA-Public Use
  Company Number: US-BAYER-201012719BCC

PATIENT
  Age: 44 Year
  Sex: Female
  Weight: 52 kg

DRUGS (2)
  1. ALKA-SELTZER PLUS COLD TABLETS [Suspect]
     Indication: NASOPHARYNGITIS
     Dosage: TOTAL DAILY DOSE: 2 DF  UNIT DOSE: 2 DF
     Route: 048
     Dates: start: 20100302
  2. BENADRYL [Concomitant]
     Indication: EYE SWELLING
     Route: 065
     Dates: start: 20100301

REACTIONS (4)
  - EYE SWELLING [None]
  - HYPERSENSITIVITY [None]
  - SWELLING FACE [None]
  - VISUAL IMPAIRMENT [None]
